FAERS Safety Report 12715506 (Version 2)
Quarter: 2016Q4

REPORT INFORMATION
  Report Type: Spontaneous
  Country: GE (occurrence: GE)
  Receive Date: 20160906
  Receipt Date: 20161221
  Transmission Date: 20170207
  Serious: Yes (Other)
  Sender: FDA-Public Use
  Company Number: GE-ROCHE-1825596

PATIENT
  Age: 65 Year
  Sex: Female

DRUGS (7)
  1. CHLOROPYRAMINE [Concomitant]
     Active Substance: CHLOROPYRAMINE
     Dosage: 20 MG/ML, 1 AMP.L/M FOR 5 DAYS
     Route: 065
  2. LEVOCETIRIZINE [Concomitant]
     Active Substance: LEVOCETIRIZINE
     Dosage: 2%/1ML, 1 AMP L/M FOR 5 DAYS
     Route: 065
  3. ESBRIET [Suspect]
     Active Substance: PIRFENIDONE
     Dosage: SECOND WEEK
     Route: 048
     Dates: end: 201608
  4. DESLORATADINE. [Concomitant]
     Active Substance: DESLORATADINE
     Dosage: 1 TABLET ONCE A DAY
     Route: 065
     Dates: start: 20160705
  5. ESBRIET [Suspect]
     Active Substance: PIRFENIDONE
     Indication: IDIOPATHIC PULMONARY FIBROSIS
     Dosage: FIRST WEEK
     Route: 048
     Dates: start: 201608, end: 201608
  6. ESBRIET [Suspect]
     Active Substance: PIRFENIDONE
     Route: 048
     Dates: start: 20160621
  7. MEDROL [Concomitant]
     Active Substance: METHYLPREDNISOLONE
     Dosage: ONCE A DAY A DAY FOR 1 WEEK, AFTER ONCE IN 2 DAYS FOR 2 WEEKS AND ONCE IN 3 DAYS FOR 1 WEEK
     Route: 065
     Dates: start: 20160621

REACTIONS (3)
  - Dermatitis allergic [Recovered/Resolved]
  - Urticaria [Recovered/Resolved]
  - Headache [Recovered/Resolved]

NARRATIVE: CASE EVENT DATE: 201608
